APPROVED DRUG PRODUCT: BRINSUPRI
Active Ingredient: BRENSOCATIB
Strength: 25MG
Dosage Form/Route: TABLET;ORAL
Application: N217673 | Product #002
Applicant: INSMED INC
Approved: Aug 12, 2025 | RLD: Yes | RS: Yes | Type: RX

PATENTS:
Patent 12054465 | Expires: Jan 21, 2035
Patent 11814359 | Expires: Jan 21, 2035
Patent 11773069 | Expires: Jan 21, 2035
Patent 11673871 | Expires: Jan 21, 2035
Patent 11655224 | Expires: Jan 21, 2035
Patent 11655223 | Expires: Jan 21, 2035
Patent 11655222 | Expires: Jan 21, 2035
Patent 11655221 | Expires: Jan 21, 2035
Patent 10669245 | Expires: Jan 21, 2035
Patent 10287258 | Expires: Jan 21, 2035
Patent 9815805 | Expires: Jan 21, 2035
Patent 12201638 | Expires: Mar 1, 2039
Patent 9522894 | Expires: Mar 12, 2035
Patent 12059424 | Expires: Feb 21, 2040

EXCLUSIVITY:
Code: NCE | Date: Aug 12, 2030